FAERS Safety Report 17175461 (Version 1)
Quarter: 2019Q4

REPORT INFORMATION
  Report Type: Report from Study
  Country: US (occurrence: US)
  Receive Date: 20191218
  Receipt Date: 20191218
  Transmission Date: 20200122
  Serious: Yes (Other)
  Sender: FDA-Public Use
  Company Number: US-SAGE-2019SAGE000073

PATIENT

DRUGS (2)
  1. CELEXA [Suspect]
     Active Substance: CITALOPRAM HYDROBROMIDE
     Indication: PERINATAL DEPRESSION
     Dosage: UNK
     Route: 065
     Dates: start: 2019, end: 2019
  2. ZULRESSO [Suspect]
     Active Substance: BREXANOLONE
     Indication: PERINATAL DEPRESSION
     Dosage: 100MG/20ML SINGLE-DOSE VIAL
     Route: 042
     Dates: start: 20191113, end: 20191115

REACTIONS (1)
  - Seizure [Recovered/Resolved]

NARRATIVE: CASE EVENT DATE: 20191117
